FAERS Safety Report 11169659 (Version 2)
Quarter: 2015Q2

REPORT INFORMATION
  Report Type: Spontaneous
  Country: JP (occurrence: JP)
  Receive Date: 20150605
  Receipt Date: 20150616
  Transmission Date: 20150821
  Serious: Yes (Other)
  Sender: FDA-Public Use
  Company Number: JP-JNJFOC-20150520332

PATIENT
  Age: 59 Year
  Sex: Male

DRUGS (1)
  1. COOL MINT LISTERINE ANTISEPTIC [Suspect]
     Active Substance: EUCALYPTOL\MENTHOL\METHYL SALICYLATE\THYMOL
     Indication: DENTAL DISORDER PROPHYLAXIS
     Route: 048

REACTIONS (2)
  - Leukoplakia oral [Not Recovered/Not Resolved]
  - Anxiety [Unknown]
